FAERS Safety Report 14555081 (Version 1)
Quarter: 2018Q1

REPORT INFORMATION
  Report Type: Spontaneous
  Country: CH (occurrence: CH)
  Receive Date: 20180220
  Receipt Date: 20180220
  Transmission Date: 20180509
  Serious: Yes (Life-Threatening, Hospitalization, Other)
  Sender: FDA-Public Use
  Company Number: CH-PFIZER INC-2018070695

PATIENT
  Age: 83 Year
  Sex: Female

DRUGS (6)
  1. METHOTREXATE SODIUM. [Suspect]
     Active Substance: METHOTREXATE SODIUM
     Indication: RHEUMATOID ARTHRITIS
     Dosage: 2.5 MG, UNK (ON MONDAYS (2.5 MG,4 IN 1 W))
     Route: 048
     Dates: start: 201704, end: 20180130
  2. BILOL [Concomitant]
     Active Substance: BISOPROLOL
     Indication: HYPERTENSION
     Dosage: 5 MG (5 MG,1 IN 1 D)
     Route: 048
  3. TRIMIPRAMIN [Concomitant]
     Active Substance: TRIMIPRAMINE MALEATE
     Dosage: 12.5 MG (12.5 MG,1 IN 1 D)
     Route: 048
  4. LIPANTHYL [Concomitant]
     Active Substance: FENOFIBRATE
     Indication: DYSLIPIDAEMIA
     Dosage: 200 MG (200 MG,1 IN 1 D)
     Route: 048
  5. SINTROM [Concomitant]
     Active Substance: ACENOCOUMAROL
     Indication: PULMONARY EMBOLISM
     Dosage: UNK
     Route: 048
     Dates: end: 20180130
  6. ACIDUM FOLICUM [Concomitant]
     Active Substance: FOLIC ACID
     Dosage: 5 MG, UNK (4 IN 1 W)
     Route: 048

REACTIONS (14)
  - Pancytopenia [Recovering/Resolving]
  - Human metapneumovirus test positive [Unknown]
  - Oesophagitis [Not Recovered/Not Resolved]
  - Pneumonia [Not Recovered/Not Resolved]
  - Toxicity to various agents [Unknown]
  - Sinusitis [Unknown]
  - Stomatitis [Not Recovered/Not Resolved]
  - Acute respiratory distress syndrome [Not Recovered/Not Resolved]
  - Odynophagia [Unknown]
  - Drug administration error [Unknown]
  - Agranulocytosis [Recovered/Resolved]
  - Diarrhoea [Recovered/Resolved]
  - Drug prescribing error [Unknown]
  - Acute kidney injury [Recovered/Resolved]

NARRATIVE: CASE EVENT DATE: 20180130
